FAERS Safety Report 24589282 (Version 2)
Quarter: 2024Q4

REPORT INFORMATION
  Report Type: Spontaneous
  Country: FR (occurrence: FR)
  Receive Date: 20241107
  Receipt Date: 20241113
  Transmission Date: 20250114
  Serious: Yes (Hospitalization)
  Sender: PFIZER
  Company Number: None

PATIENT
  Age: 76 Year
  Sex: Male

DRUGS (2)
  1. ADCETRIS [Suspect]
     Active Substance: BRENTUXIMAB VEDOTIN
     Indication: Lymphoma
     Dosage: 50 MILLIGRAM
     Route: 042
     Dates: start: 20240729, end: 20240909
  2. OPDIVO [Suspect]
     Active Substance: NIVOLUMAB
     Indication: Lymphoma
     Dosage: UNSPECIFIED DOSE PER MILLILITRE
     Route: 042
     Dates: start: 20240729, end: 20240909

REACTIONS (2)
  - Acute kidney injury [Recovering/Resolving]
  - Tubulointerstitial nephritis [Recovering/Resolving]

NARRATIVE: CASE EVENT DATE: 20240909
